FAERS Safety Report 8766617 (Version 2)
Quarter: 2012Q4

REPORT INFORMATION
  Report Type: 
  Country: US (occurrence: US)
  Receive Date: 20120904
  Receipt Date: 20120904
  Transmission Date: 20130627
  Serious: Yes (Hospitalization)
  Sender: FDA-Public Use
  Company Number: US-SANOFI-AVENTIS-2012SA057888

PATIENT
  Age: 27 Year
  Sex: Female

DRUGS (9)
  1. URSODEOXYCHOLIC ACID [Suspect]
     Indication: CHOLESTASIS OF PREGNANCY
     Route: 065
  2. ZOLPIDEM [Suspect]
     Indication: GENERALIZED ITCHING
     Route: 065
  3. HYDROCORTISONE [Suspect]
     Indication: GENERALIZED ITCHING
     Route: 065
  4. COLESTYRAMINE [Concomitant]
     Indication: PRURITUS GENERALIZED
  5. VITAMIN K [Concomitant]
     Indication: PRURITUS GENERALIZED
  6. EMOLLIENTS AND PROTECTIVES [Concomitant]
     Indication: GENERALIZED ITCHING
  7. ANTIHISTAMINES [Concomitant]
     Indication: GENERALIZED ITCHING
  8. ALBUMIN [Concomitant]
     Dosage: strength: 5%; two excahnges on admission, then weekly for 4 successive weeks
  9. PLASMA, FRESH FROZEN [Concomitant]
     Dosage: two excahnges on admission, then weekly for 4 successive weeks

REACTIONS (5)
  - Insomnia [Recovered/Resolved]
  - Restlessness [Recovered/Resolved]
  - Suicidal ideation [Recovered/Resolved]
  - Drug ineffective [Recovered/Resolved]
  - Exposure during pregnancy [Unknown]
